FAERS Safety Report 6166019-8 (Version None)
Quarter: 2009Q2

REPORT INFORMATION
  Report Type: 
  Country: None (occurrence: None)
  Receive Date: 20090424
  Receipt Date: 20090421
  Transmission Date: 20091009
  Serious: Yes (Hospitalization)
  Sender: FDA-Public Use
  Company Number: US-SP-2009-01702

PATIENT
  Age: 63 Year
  Sex: Female

DRUGS (1)
  1. THERACYS [Suspect]
     Indication: BLADDER CANCER
     Route: 043
     Dates: start: 20081113

REACTIONS (3)
  - ABDOMINAL DISTENSION [None]
  - ARTHRALGIA [None]
  - OEDEMA PERIPHERAL [None]
